FAERS Safety Report 18463613 (Version 2)
Quarter: 2020Q4

REPORT INFORMATION
  Report Type: Report from Study
  Country: JP (occurrence: JP)
  Receive Date: 20201104
  Receipt Date: 20201221
  Transmission Date: 20210114
  Serious: Yes (Death)
  Sender: FDA-Public Use
  Company Number: JP-EMD SERONO-9196179

PATIENT
  Age: 65 Year
  Sex: Male
  Weight: 72 kg

DRUGS (6)
  1. INLYTA [Concomitant]
     Active Substance: AXITINIB
     Dates: start: 20200630, end: 20200728
  2. ACETAMINOPHEN. [Concomitant]
     Active Substance: ACETAMINOPHEN
     Indication: PREMEDICATION
     Route: 041
     Dates: start: 20200630, end: 20200923
  3. BAVENCIO [Suspect]
     Active Substance: AVELUMAB
     Indication: METASTATIC RENAL CELL CARCINOMA
     Dates: start: 20200630, end: 20200923
  4. INLYTA [Concomitant]
     Active Substance: AXITINIB
     Indication: METASTATIC RENAL CELL CARCINOMA
     Dates: start: 201503, end: 201510
  5. INLYTA [Concomitant]
     Active Substance: AXITINIB
     Dates: start: 20200729, end: 20200930
  6. CHLORPHENIRAMINE MALEATE. [Concomitant]
     Active Substance: CHLORPHENIRAMINE MALEATE
     Indication: PREMEDICATION
     Route: 041
     Dates: start: 20200630, end: 20200923

REACTIONS (1)
  - Death [Fatal]

NARRATIVE: CASE EVENT DATE: 20201022
